FAERS Safety Report 6471896-7 (Version None)
Quarter: 2009Q4

REPORT INFORMATION
  Report Type: 
  Country: None (occurrence: None)
  Receive Date: 20091203
  Receipt Date: 20091130
  Transmission Date: 20100525
  Serious: Yes (Other)
  Sender: FDA-Public Use
  Company Number: ES-WYE-G05026609

PATIENT
  Age: 45 Year
  Sex: Male
  Weight: 70 kg

DRUGS (2)
  1. DOBUPAL RETARD [Suspect]
     Indication: DEPRESSION
     Route: 048
     Dates: start: 20090722
  2. DOBUPAL RETARD [Suspect]
     Route: 048

REACTIONS (4)
  - ABDOMINAL DISCOMFORT [None]
  - DIZZINESS [None]
  - RESPIRATORY DISTRESS [None]
  - WHEEZING [None]
